FAERS Safety Report 7605473-9 (Version None)
Quarter: 2011Q3

REPORT INFORMATION
  Report Type: 
  Country: None (occurrence: None)
  Receive Date: 20110705
  Receipt Date: 20110620
  Transmission Date: 20111222
  Serious: Yes (Other)
  Sender: FDA-Public Use
  Company Number: LTI2011A00121

PATIENT
  Age: 59 Year
  Sex: Male

DRUGS (5)
  1. COMPETACT (PIOGLITAZONE HYDROCHLORIDE, METFORMIN HYDROCHLORIDE) [Suspect]
     Indication: TYPE 2 DIABETES MELLITUS
     Dosage: 2 TAB. (1 TABE., 2 IN 1 D), ORAL
     Route: 048
     Dates: start: 20110317, end: 20110429
  2. CRESTOR [Concomitant]
  3. ASPIRIN [Concomitant]
  4. COAPROVEL (HYDROCHLOROTHIAIZIDE, IRBESARTAN) [Concomitant]
  5. GLIMEPRIDIE (GLIMEPRIDE) [Concomitant]

REACTIONS (3)
  - URINARY TRACT INFECTION [None]
  - BLADDER TRANSITIONAL CELL CARCINOMA [None]
  - PROSTATE CANCER [None]
